FAERS Safety Report 6050038-6 (Version None)
Quarter: 2009Q1

REPORT INFORMATION
  Report Type: 
  Country: None (occurrence: None)
  Receive Date: 20090121
  Receipt Date: 20090107
  Transmission Date: 20090719
  Serious: Yes (Hospitalization)
  Sender: FDA-Public Use
  Company Number: MPS1-1000157

PATIENT
  Age: 27 Year
  Sex: Male
  Weight: 31 kg

DRUGS (22)
  1. ALDURAZYME [Suspect]
     Indication: MUCOPOLYSACCHARIDOSIS
     Dosage: 20 MG, QW, INTRAVENOUS
     Route: 042
     Dates: start: 20070103
  2. ACETAMINOPHEN [Concomitant]
  3. ALBUTEROL (SALBUTAMOL SULFATE) [Concomitant]
  4. CEFTRIAZONE (CEFTRIAXONE SODIUM) [Concomitant]
  5. AMOXICILLIN [Concomitant]
  6. DIPHENHYDRAMINE HCL [Concomitant]
  7. ERYTHROMYCIN ETHYLSUCCINATE [Concomitant]
  8. PEPCID [Concomitant]
  9. FUROSEMIDE (FUROSEMIDE SODIUM) [Concomitant]
  10. HEPARIN LOCK-FLUSH [Concomitant]
  11. KEPPRA [Concomitant]
  12. METRONIDAZOLE (METRONISAZOLE) [Concomitant]
  13. REMERON [Concomitant]
  14. VIGAMOX [Concomitant]
  15. BACTIROBAN (MUPIROCIN) [Concomitant]
  16. JEVITY (ELECTROLYTES NOS, FATTY ACIDS NOS, GLYCONE MAX SEED OIL, MINER [Concomitant]
  17. POTASSIUM CHLORIDE [Concomitant]
  18. PREDNISOLONE ACETATE [Concomitant]
  19. MESTINON [Concomitant]
  20. SODIUM FLUORIDE (SODIUM FLUORIDE) [Concomitant]
  21. CEFEPIME [Concomitant]
  22. TOBRAMYCIN [Concomitant]

REACTIONS (9)
  - BILIARY DILATATION [None]
  - BILIARY SEPSIS [None]
  - CATHETER SEPSIS [None]
  - CHOLELITHIASIS [None]
  - DEHYDRATION [None]
  - HYPERNATRAEMIA [None]
  - KLEBSIELLA SEPSIS [None]
  - PANCYTOPENIA [None]
  - WEIGHT DECREASED [None]
